FAERS Safety Report 12674673 (Version 1)
Quarter: 2016Q3

REPORT INFORMATION
  Report Type: Spontaneous
  Country: US (occurrence: US)
  Receive Date: 20160823
  Receipt Date: 20160823
  Transmission Date: 20161109
  Serious: Yes (Hospitalization)
  Sender: FDA-Public Use
  Company Number: GXBR2016US002567

PATIENT
  Sex: Female

DRUGS (2)
  1. COUMADIN [Concomitant]
     Active Substance: WARFARIN SODIUM
     Indication: PRODUCT USED FOR UNKNOWN INDICATION
     Dosage: UNK DF, UNK
  2. TRIAMCINOLONE ACETONIDE. [Suspect]
     Active Substance: TRIAMCINOLONE ACETONIDE
     Indication: PYODERMA GANGRENOSUM
     Dosage: UNK DF, UNK
     Route: 061

REACTIONS (5)
  - Blister [Recovering/Resolving]
  - Skin discolouration [Recovering/Resolving]
  - Pyrexia [Recovering/Resolving]
  - Snake bite [Recovering/Resolving]
  - Pain [Recovering/Resolving]
